FAERS Safety Report 17570045 (Version 1)
Quarter: 2020Q1

REPORT INFORMATION
  Report Type: Spontaneous
  Country: IT (occurrence: IT)
  Receive Date: 20200323
  Receipt Date: 20200323
  Transmission Date: 20200409
  Serious: Yes (Death, Other)
  Sender: FDA-Public Use
  Company Number: IT-ROCHE-2571071

PATIENT
  Age: 50 Year
  Sex: Male

DRUGS (6)
  1. GANCICLOVIR. [Suspect]
     Active Substance: GANCICLOVIR
     Indication: ANTIVIRAL TREATMENT
     Route: 065
  2. MELPHALAN. [Concomitant]
     Active Substance: MELPHALAN
  3. ETOPOSIDE. [Suspect]
     Active Substance: ETOPOSIDE
     Indication: BONE MARROW CONDITIONING REGIMEN
     Route: 065
  4. LOMUSTINE. [Concomitant]
     Active Substance: LOMUSTINE
  5. FOSCARNET [Concomitant]
     Active Substance: FOSCARNET
  6. CYTARABINE. [Concomitant]
     Active Substance: CYTARABINE

REACTIONS (2)
  - Kaposi^s sarcoma [Unknown]
  - Malignant neoplasm progression [Fatal]
